FAERS Safety Report 19762745 (Version 1)
Quarter: 2021Q3

REPORT INFORMATION
  Report Type: Spontaneous
  Country: SE (occurrence: SE)
  Receive Date: 20210827
  Receipt Date: 20210827
  Transmission Date: 20211014
  Serious: Yes (Life-Threatening, Disabling)
  Sender: FDA-Public Use
  Company Number: SE-ABBVIE-21K-150-4058059-00

PATIENT
  Age: 50 Year
  Sex: Female

DRUGS (12)
  1. OFTAGEL [Concomitant]
     Active Substance: CARBOMER
     Indication: PRODUCT USED FOR UNKNOWN INDICATION
     Dosage: 2,5 MG/G VB, EYE GEL IN SINGLE?DOSE CONTAINERS
     Route: 047
     Dates: start: 20210114
  2. DESLORATADIN MYLAN [Concomitant]
     Active Substance: DESLORATADINE
     Indication: PRODUCT USED FOR UNKNOWN INDICATION
     Dosage: 5 MG 1 TABLETT VB
     Route: 048
     Dates: start: 20200730
  3. METOPROLOL ORION [Concomitant]
     Active Substance: METOPROLOL
     Indication: PRODUCT USED FOR UNKNOWN INDICATION
     Dosage: 50 MG 1X1
     Route: 048
     Dates: start: 20181130
  4. ARTELAC [Concomitant]
     Indication: PRODUCT USED FOR UNKNOWN INDICATION
     Dosage: VB
     Route: 047
     Dates: start: 20210105
  5. BETNOVAT [Concomitant]
     Active Substance: BETAMETHASONE
     Indication: PRODUCT USED FOR UNKNOWN INDICATION
     Dosage: 0.1 PERCENT IRREGULAR DOSING
     Dates: start: 20200814
  6. PROPAVAN [Concomitant]
     Active Substance: PROPIOMAZINE
     Indication: PRODUCT USED FOR UNKNOWN INDICATION
     Dosage: 25 MG 1 TABL VB
     Dates: start: 20160203
  7. TAVEGYL [Concomitant]
     Active Substance: CLEMASTINE FUMARATE
     Indication: PRODUCT USED FOR UNKNOWN INDICATION
     Dosage: 1 MG 1 TABLET OVERNIGHT
     Route: 048
     Dates: start: 20200730
  8. OCULENTUM SIMPLEX [Concomitant]
     Indication: PRODUCT USED FOR UNKNOWN INDICATION
     Dosage: TO THE NIGHT IN BOTH EYES
     Route: 047
     Dates: start: 20210114
  9. RINVOQ [Suspect]
     Active Substance: UPADACITINIB
     Indication: ARTHRITIS
  10. RINVOQ [Suspect]
     Active Substance: UPADACITINIB
     Indication: SJOGREN^S SYNDROME
     Dosage: 15 MG 1X1
     Route: 048
     Dates: start: 20210524, end: 20210628
  11. PREDNISOLON ALTERNOVA [Suspect]
     Active Substance: PREDNISOLONE
     Indication: ARTHRITIS
     Dosage: 5 MG IRREGULAR DOSING
     Route: 048
     Dates: start: 20130619
  12. PREDNISOLON ALTERNOVA [Suspect]
     Active Substance: PREDNISOLONE
     Indication: SJOGREN^S SYNDROME

REACTIONS (1)
  - Meningitis bacterial [Recovered/Resolved with Sequelae]

NARRATIVE: CASE EVENT DATE: 20210628
